FAERS Safety Report 21328823 (Version 1)
Quarter: 2022Q3

REPORT INFORMATION
  Report Type: Other
  Country: US (occurrence: None)
  Receive Date: 20220913
  Receipt Date: 20220913
  Transmission Date: 20221026
  Serious: Yes (Other)
  Sender: FDA-Public Use
  Company Number: US-Navinta LLC-000291

PATIENT
  Age: 63 Year
  Sex: Female

DRUGS (4)
  1. RIBAVIRIN [Suspect]
     Active Substance: RIBAVIRIN
     Indication: Hepatitis E RNA
     Dosage: 800 MG/DAY (400MG TWICE PER DAY)
     Route: 048
  2. RIBAVIRIN [Suspect]
     Active Substance: RIBAVIRIN
     Indication: Hepatitis E RNA
     Dosage: 1,000 MG/DAY
     Route: 048
  3. RIBAVIRIN [Suspect]
     Active Substance: RIBAVIRIN
     Indication: Hepatitis E RNA
     Dosage: 1,200 MG/DAY (600 MG TWICE PER DAY)
     Route: 048
  4. RIBAVIRIN [Suspect]
     Active Substance: RIBAVIRIN
     Indication: Hepatitis E RNA
     Dosage: 1000 MG/DAY
     Route: 048

REACTIONS (3)
  - Haemolytic anaemia [Unknown]
  - Treatment failure [Unknown]
  - Hepatitis E [Unknown]
